FAERS Safety Report 7125688-6 (Version None)
Quarter: 2010Q4

REPORT INFORMATION
  Report Type: 
  Country: None (occurrence: None)
  Receive Date: 20101129
  Receipt Date: 20101117
  Transmission Date: 20110411
  Serious: Yes (Hospitalization)
  Sender: FDA-Public Use
  Company Number: A0879554A

PATIENT
  Age: 38 Year
  Sex: Female
  Weight: 108.6 kg

DRUGS (7)
  1. AVANDIA [Suspect]
     Dosage: 4MG TWICE PER DAY
     Route: 048
     Dates: start: 20060101, end: 20090701
  2. ZETIA [Concomitant]
  3. ZOCOR [Concomitant]
  4. ALBUTEROL [Concomitant]
  5. METFORMIN [Concomitant]
  6. AMARYL [Concomitant]
  7. LEVEMIR [Concomitant]

REACTIONS (2)
  - ISCHAEMIC STROKE [None]
  - RENAL FAILURE [None]
